FAERS Safety Report 9297017 (Version 1)
Quarter: 2013Q2

REPORT INFORMATION
  Report Type: Spontaneous
  Country: US (occurrence: US)
  Receive Date: 20130519
  Receipt Date: 20130519
  Transmission Date: 20140414
  Serious: No
  Sender: FDA-Public Use
  Company Number: US-ALLERGAN-1303070US

PATIENT
  Age: 70 Year
  Sex: Female

DRUGS (4)
  1. RESTASIS [Suspect]
     Indication: EYE ALLERGY
     Dosage: 2 GTT, BID
     Route: 047
     Dates: start: 201208
  2. LASTACAFT [Suspect]
     Indication: EYE ALLERGY
     Dosage: 2 GTT, QD
     Route: 047
     Dates: start: 201208, end: 201209
  3. LOTEMAX [Suspect]
     Indication: EYE ALLERGY
     Dosage: 2 GTT, BID
     Route: 047
     Dates: start: 201208, end: 201209
  4. VITAMINS NOS [Concomitant]
     Indication: VITAMIN SUPPLEMENTATION
     Dosage: UNK

REACTIONS (3)
  - Off label use [Unknown]
  - Vision blurred [Recovered/Resolved]
  - Eyelid margin crusting [Unknown]
